FAERS Safety Report 17066529 (Version 1)
Quarter: 2019Q4

REPORT INFORMATION
  Report Type: Spontaneous
  Country: US (occurrence: US)
  Receive Date: 20191122
  Receipt Date: 20191122
  Transmission Date: 20200122
  Serious: No
  Sender: FDA-Public Use
  Company Number: US-BAYER-2019-207441

PATIENT

DRUGS (6)
  1. ALEVE [Suspect]
     Active Substance: NAPROXEN SODIUM
  2. ALPRAZOLAM. [Concomitant]
     Active Substance: ALPRAZOLAM
     Indication: INSOMNIA
  3. ALPRAZOLAM. [Concomitant]
     Active Substance: ALPRAZOLAM
     Indication: ANXIETY
     Dosage: UNK UNK, PRN
     Dates: start: 20190707
  4. CELECOXIB. [Concomitant]
     Active Substance: CELECOXIB
     Dosage: 1 OR 2 BY MOUTH ONCE OR TWICE DAILY
     Dates: start: 20190708
  5. GLIPIZIDE. [Concomitant]
     Active Substance: GLIPIZIDE
     Indication: DIABETES MELLITUS
     Dosage: UNK FROM 4 TO 1 OR 2 DAILY
     Dates: start: 20190707
  6. ALPRAZOLAM. [Concomitant]
     Active Substance: ALPRAZOLAM
     Indication: BRUXISM

REACTIONS (5)
  - Drug hypersensitivity [Unknown]
  - Hypertension [None]
  - Oedema [Unknown]
  - Swelling [None]
  - Abdominal discomfort [None]
